FAERS Safety Report 8857053 (Version 1)
Quarter: 2012Q4

REPORT INFORMATION
  Report Type: 
  Country: US (occurrence: US)
  Receive Date: 20121023
  Receipt Date: 20121023
  Transmission Date: 20130627
  Serious: No
  Sender: FDA-Public Use
  Company Number: US-AMGEN-USASP2012055784

PATIENT
  Age: 55 Year
  Sex: Female
  Weight: 138 kg

DRUGS (9)
  1. ENBREL [Suspect]
     Indication: PRODUCT USED FOR UNKNOWN INDICATION
     Dosage: 50 mg/ml, qwk
     Route: 058
  2. RESTASIS [Concomitant]
     Dosage: 0.05 %, UNK
  3. PREMARIN [Concomitant]
     Dosage: 0.3 mg, UNK
  4. METOPROL ZOK MEPHA [Concomitant]
     Dosage: 25 mg, UNK
  5. VITAMIN D /00107901/ [Concomitant]
     Dosage: 1000 unit, UNK
  6. VITAMIN B [Concomitant]
     Dosage: UNK
  7. CALCIUM [Concomitant]
     Dosage: 500 UNK, UNK
  8. MULTIVITAMIN                       /00097801/ [Concomitant]
     Dosage: UNK
  9. OMEGA 3                            /01334101/ [Concomitant]
     Dosage: 1000 mg, UNK

REACTIONS (1)
  - Herpes zoster [Unknown]
